FAERS Safety Report 10013995 (Version 3)
Quarter: 2014Q3

REPORT INFORMATION
  Report Type: Report from Study
  Country: US (occurrence: US)
  Receive Date: 20140317
  Receipt Date: 20140729
  Transmission Date: 20150326
  Serious: Yes (Hospitalization, Other)
  Sender: FDA-Public Use
  Company Number: US-JNJFOC-20131208524

PATIENT
  Age: 79 Year
  Sex: Male
  Weight: 96.16 kg

DRUGS (2)
  1. PREDNISONE. [Suspect]
     Active Substance: PREDNISONE
     Indication: PROSTATE CANCER
     Route: 065
  2. ZYTIGA [Suspect]
     Active Substance: ABIRATERONE ACETATE
     Indication: PROSTATE CANCER
     Dosage: 4 PILLS PER DAY 250 MG EACH ONCE PER DAY
     Route: 048
     Dates: start: 20130717, end: 20131008

REACTIONS (13)
  - Infection [Unknown]
  - Fatigue [Unknown]
  - Oedema peripheral [Not Recovered/Not Resolved]
  - Dysuria [Not Recovered/Not Resolved]
  - Haematuria [Not Recovered/Not Resolved]
  - Asthenia [Unknown]
  - Decubitus ulcer [Not Recovered/Not Resolved]
  - Cystitis noninfective [Not Recovered/Not Resolved]
  - Decreased appetite [Unknown]
  - Pollakiuria [Unknown]
  - Adverse event [Unknown]
  - Feeling cold [Unknown]
  - Flushing [Unknown]

NARRATIVE: CASE EVENT DATE: 2013
